FAERS Safety Report 14829463 (Version 1)
Quarter: 2018Q2

REPORT INFORMATION
  Report Type: Spontaneous
  Country: EG (occurrence: EG)
  Receive Date: 20180430
  Receipt Date: 20180430
  Transmission Date: 20180711
  Serious: Yes (Life-Threatening, Other)
  Sender: FDA-Public Use
  Company Number: EG-ASTRAZENECA-2018SE54983

PATIENT
  Age: 56 Year
  Sex: Male
  Weight: 75 kg

DRUGS (5)
  1. ASPIRIN. [Suspect]
     Active Substance: ASPIRIN
     Indication: ISCHAEMIA
     Route: 048
     Dates: start: 20180414
  2. BRILIQUE [Suspect]
     Active Substance: TICAGRELOR
     Indication: ISCHAEMIA
     Route: 048
     Dates: start: 20180414
  3. CONCOR [Concomitant]
     Active Substance: BISOPROLOL FUMARATE
     Indication: ILL-DEFINED DISORDER
     Route: 048
  4. CRESTOR [Concomitant]
     Active Substance: ROSUVASTATIN CALCIUM
     Indication: DYSLIPIDAEMIA
     Route: 048
  5. CAPOTEN [Concomitant]
     Active Substance: CAPTOPRIL
     Indication: ILL-DEFINED DISORDER
     Route: 048

REACTIONS (2)
  - Thrombosis [Unknown]
  - Myocardial infarction [Unknown]

NARRATIVE: CASE EVENT DATE: 20180420
